FAERS Safety Report 5190845-5 (Version None)
Quarter: 2006Q4

REPORT INFORMATION
  Report Type: 
  Country: None (occurrence: None)
  Receive Date: 20061222
  Receipt Date: 20060927
  Transmission Date: 20070319
  Serious: Yes (Hospitalization)
  Sender: FDA-Public Use
  Company Number: US-ABBOTT-06P-163-0345070-00

PATIENT
  Sex: Male

DRUGS (9)
  1. RITONAVIR SOFT GELATIN CAPSULES [Suspect]
     Indication: HIV INFECTION
     Route: 048
  2. APTIVUS [Suspect]
     Indication: HIV INFECTION
     Route: 048
  3. FUZEON [Concomitant]
     Indication: DRUG USE FOR UNKNOWN INDICATION
     Route: 058
  4. NANDROLONE DECANOATE [Concomitant]
     Indication: DRUG USE FOR UNKNOWN INDICATION
     Route: 030
  5. METHADONE HCL [Concomitant]
     Indication: DRUG USE FOR UNKNOWN INDICATION
  6. PRIMIDONE [Concomitant]
     Indication: DRUG USE FOR UNKNOWN INDICATION
  7. DAPSONE [Concomitant]
     Indication: DRUG USE FOR UNKNOWN INDICATION
     Route: 048
  8. TENOFOVIR [Concomitant]
     Indication: DRUG USE FOR UNKNOWN INDICATION
     Route: 048
  9. ABACAVIR [Concomitant]
     Indication: DRUG USE FOR UNKNOWN INDICATION
     Route: 048

REACTIONS (1)
  - HAEMOPTYSIS [None]
